FAERS Safety Report 10697178 (Version 1)
Quarter: 2015Q1

REPORT INFORMATION
  Report Type: Spontaneous
  Country: US (occurrence: None)
  Receive Date: 20150107
  Receipt Date: 20150107
  Transmission Date: 20150721
  Serious: No
  Sender: FDA-Public Use
  Company Number: None

PATIENT
  Age: 57 Year
  Sex: Male
  Weight: 106.6 kg

DRUGS (2)
  1. INVOKANA [Suspect]
     Active Substance: CANAGLIFLOZIN
     Dosage: 1 PILLS
     Route: 048
     Dates: start: 20141211, end: 20141215
  2. INVOKANA [Suspect]
     Active Substance: CANAGLIFLOZIN
     Indication: BLOOD GLUCOSE INCREASED
     Dosage: 1 PILLS
     Route: 048
     Dates: start: 20141211, end: 20141215

REACTIONS (1)
  - Urticaria [None]

NARRATIVE: CASE EVENT DATE: 20141215
